FAERS Safety Report 7571927-7 (Version None)
Quarter: 2011Q2

REPORT INFORMATION
  Report Type: 
  Country: None (occurrence: None)
  Receive Date: 20110624
  Receipt Date: 20110107
  Transmission Date: 20111010
  Serious: No
  Sender: FDA-Public Use
  Company Number: A0904082A

PATIENT
  Age: 18 Year
  Sex: Female

DRUGS (6)
  1. SINGULAIR [Concomitant]
  2. VENTOLIN HFA [Concomitant]
  3. VERAMYST [Suspect]
     Indication: ASTHMA
     Route: 045
     Dates: start: 20090101
  4. QVAR 40 [Concomitant]
  5. IPRATROPIUM BROMIDE [Concomitant]
  6. MAXALT [Concomitant]

REACTIONS (1)
  - OVERDOSE [None]
